FAERS Safety Report 11581317 (Version 1)
Quarter: 2015Q4

REPORT INFORMATION
  Report Type: Spontaneous
  Country: US (occurrence: US)
  Receive Date: 20151001
  Receipt Date: 20151001
  Transmission Date: 20160304
  Serious: Yes (Other)
  Sender: FDA-Public Use
  Company Number: US-ROCHE-653508

PATIENT
  Age: 50 Year
  Sex: Male

DRUGS (5)
  1. ALCOHOL. [Suspect]
     Active Substance: ALCOHOL
     Indication: PRODUCT USED FOR UNKNOWN INDICATION
     Route: 065
  2. RIBASPHERE [Suspect]
     Active Substance: RIBAVIRIN
     Indication: HEPATITIS C
     Dosage: DIVIDED DOSES; WEEK 39
     Route: 065
  3. PEGASYS [Suspect]
     Active Substance: PEGINTERFERON ALFA-2A
     Indication: HEPATITIS C
     Dosage: FORM: PRE-FILLED SYRINGE; WEEK 39
     Route: 065
  4. GEMFIBROZIL. [Suspect]
     Active Substance: GEMFIBROZIL
     Indication: PRODUCT USED FOR UNKNOWN INDICATION
     Route: 065
  5. COCAINE [Suspect]
     Active Substance: COCAINE
     Indication: PRODUCT USED FOR UNKNOWN INDICATION
     Route: 065

REACTIONS (20)
  - Drug abuse [Unknown]
  - Abdominal pain upper [Unknown]
  - White blood cell count decreased [Not Recovered/Not Resolved]
  - Anaemia [Unknown]
  - Dyspnoea [Unknown]
  - Lung infection [Unknown]
  - Fatigue [Unknown]
  - Dry skin [Unknown]
  - Insomnia [Unknown]
  - Candida infection [Recovered/Resolved]
  - Alcohol use [Unknown]
  - Dysphagia [Unknown]
  - Weight increased [Unknown]
  - Diarrhoea [Unknown]
  - Influenza [Recovering/Resolving]
  - Abdominal distension [Not Recovered/Not Resolved]
  - Weight decreased [Recovered/Resolved]
  - Asthma [Unknown]
  - Injection site pruritus [Unknown]
  - Back pain [Unknown]

NARRATIVE: CASE EVENT DATE: 2009
